FAERS Safety Report 4475445-4 (Version None)
Quarter: 2004Q4

REPORT INFORMATION
  Report Type: 
  Country: None (occurrence: None)
  Receive Date: 20041014
  Receipt Date: 20041014
  Transmission Date: 20050328
  Serious: No
  Sender: FDA-Public Use
  Company Number: None

PATIENT
  Age: 8 Year
  Sex: Female
  Weight: 29.0302 kg

DRUGS (1)
  1. PAXIL [Suspect]
     Indication: TOURETTE'S DISORDER
     Dosage: 10 MG ONE QD

REACTIONS (1)
  - PHARMACEUTICAL PRODUCT COMPLAINT [None]
